FAERS Safety Report 7534294-0 (Version None)
Quarter: 2011Q2

REPORT INFORMATION
  Report Type: 
  Country: None (occurrence: None)
  Receive Date: 20110608
  Receipt Date: 20061219
  Transmission Date: 20111010
  Serious: Yes (Hospitalization)
  Sender: FDA-Public Use
  Company Number: PHMT2006CA02312

PATIENT
  Sex: Female

DRUGS (3)
  1. CLOZAPINE [Suspect]
     Route: 048
     Dates: start: 19960819, end: 20061103
  2. CLOZAPINE [Suspect]
     Route: 048
     Dates: start: 20061104, end: 20061113
  3. CLOZAPINE [Suspect]
     Route: 048
     Dates: start: 20061214, end: 20061214

REACTIONS (1)
  - HEPATIC FAILURE [None]
